FAERS Safety Report 7323168-6 (Version None)
Quarter: 2011Q1

REPORT INFORMATION
  Report Type: 
  Country: None (occurrence: None)
  Receive Date: 20110216
  Receipt Date: 20110202
  Transmission Date: 20110831
  Serious: Yes (Hospitalization, Other)
  Sender: FDA-Public Use
  Company Number: 2011MA000991

PATIENT
  Age: 23 Year
  Sex: Female

DRUGS (1)
  1. BUPROPION HYDROCHLORIDE [Suspect]
     Dosage: 150MG;BID;PO
     Route: 048

REACTIONS (9)
  - TOXICITY TO VARIOUS AGENTS [None]
  - DRUG ABUSE [None]
  - RHINALGIA [None]
  - ASTHENIA [None]
  - EMOTIONAL DISORDER [None]
  - DEPRESSION [None]
  - TACHYCARDIA [None]
  - APATHY [None]
  - PANIC ATTACK [None]
